FAERS Safety Report 11247486 (Version 1)
Quarter: 2015Q3

REPORT INFORMATION
  Report Type: Spontaneous
  Country: US (occurrence: US)
  Receive Date: 20150708
  Receipt Date: 20150708
  Transmission Date: 20151125
  Serious: Yes (Other)
  Sender: FDA-Public Use
  Company Number: US-BIOTEST-T 480/15

PATIENT
  Age: 53 Year
  Sex: Male

DRUGS (2)
  1. TESTOSTERONE. [Suspect]
     Active Substance: TESTOSTERONE
     Indication: HYPOGONADISM
     Route: 030
  2. IVIG US [Suspect]
     Active Substance: HUMAN IMMUNOGLOBULIN G
     Indication: UPPER MOTOR NEURONE LESION
     Dosage: 0.7 G/KG OVER TWO DAYS EVERY THREE WEEKS
     Route: 042

REACTIONS (2)
  - Pulmonary embolism [Recovered/Resolved]
  - Deep vein thrombosis [Recovered/Resolved]
